FAERS Safety Report 23122528 (Version 2)
Quarter: 2024Q1

REPORT INFORMATION
  Report Type: Spontaneous
  Country: US (occurrence: US)
  Receive Date: 20231030
  Receipt Date: 20240214
  Transmission Date: 20240410
  Serious: Yes (Other)
  Sender: FDA-Public Use
  Company Number: US-BIOGEN-2023BI01232812

PATIENT
  Sex: Female

DRUGS (1)
  1. TYSABRI [Suspect]
     Active Substance: NATALIZUMAB
     Indication: Multiple sclerosis
     Route: 050
     Dates: start: 20230728, end: 202310

REACTIONS (5)
  - Viraemia [Not Recovered/Not Resolved]
  - Decreased appetite [Unknown]
  - Abdominal pain upper [Unknown]
  - Rash [Unknown]
  - Headache [Recovered/Resolved]
